FAERS Safety Report 19606020 (Version 7)
Quarter: 2021Q4

REPORT INFORMATION
  Report Type: Report from Study
  Country: US (occurrence: US)
  Receive Date: 20210723
  Receipt Date: 20211213
  Transmission Date: 20220303
  Serious: Yes (Hospitalization)
  Sender: FDA-Public Use
  Company Number: US-HORIZON THERAPEUTICS-HZN-2021-004835

PATIENT

DRUGS (4)
  1. TEPEZZA [Suspect]
     Active Substance: TEPROTUMUMAB-TRBW
     Indication: Endocrine ophthalmopathy
     Dosage: UNK
     Route: 065
     Dates: start: 20210426
  2. TEPEZZA [Suspect]
     Active Substance: TEPROTUMUMAB-TRBW
     Dosage: (4TH INFUSION)
     Route: 065
     Dates: start: 20210709
  3. TEPEZZA [Suspect]
     Active Substance: TEPROTUMUMAB-TRBW
     Dosage: (5TH INFUSION)
     Route: 065
     Dates: start: 20210806
  4. TEPEZZA [Suspect]
     Active Substance: TEPROTUMUMAB-TRBW
     Dosage: (6TH INFUSION)
     Route: 065
     Dates: start: 20210902

REACTIONS (9)
  - Pyrexia [Recovering/Resolving]
  - Malaise [Unknown]
  - Pain [Unknown]
  - Hypertension [Unknown]
  - Heart rate increased [Unknown]
  - Vomiting [Recovering/Resolving]
  - Asthenia [Recovering/Resolving]
  - Nausea [Recovering/Resolving]
  - Inappropriate schedule of product administration [Unknown]
